FAERS Safety Report 5551894-8 (Version None)
Quarter: 2007Q4

REPORT INFORMATION
  Report Type: 
  Country: None (occurrence: None)
  Receive Date: 20071212
  Receipt Date: 20071130
  Transmission Date: 20080405
  Serious: Yes (Hospitalization, Other)
  Sender: FDA-Public Use
  Company Number: US-PFIZER INC-2007101830

PATIENT
  Sex: Female
  Weight: 66.7 kg

DRUGS (4)
  1. AZITHROMYCIN [Suspect]
     Indication: HYPERSENSITIVITY
  2. VITAMINS [Concomitant]
  3. ACETYLSALICYLIC ACID SRT [Concomitant]
  4. ALL OTHER THERAPEUTIC PRODUCTS [Concomitant]

REACTIONS (10)
  - ALOPECIA [None]
  - BALANCE DISORDER [None]
  - DRUG HYPERSENSITIVITY [None]
  - EAR DISORDER [None]
  - EYE DISORDER [None]
  - FEELING ABNORMAL [None]
  - IMPAIRED DRIVING ABILITY [None]
  - NAIL GROWTH ABNORMAL [None]
  - SKIN DISCOLOURATION [None]
  - SWELLING [None]
